FAERS Safety Report 5348778-7 (Version None)
Quarter: 2007Q2

REPORT INFORMATION
  Report Type: 
  Country: None (occurrence: None)
  Receive Date: 20070606
  Receipt Date: 20070525
  Transmission Date: 20071010
  Serious: Yes (Other)
  Sender: FDA-Public Use
  Company Number: US-PFIZER INC-2007045275

PATIENT
  Sex: Female
  Weight: 81.818 kg

DRUGS (9)
  1. CHANTIX [Suspect]
     Indication: EX-SMOKER
  2. KLONOPIN [Concomitant]
  3. SYNTHROID [Concomitant]
  4. DESYREL [Concomitant]
  5. VICODIN ES [Concomitant]
  6. LEXAPRO [Concomitant]
  7. ALBUTEROL [Concomitant]
  8. PULMICORT [Concomitant]
  9. BACLOFEN [Concomitant]

REACTIONS (5)
  - FEELING COLD [None]
  - MONOPARESIS [None]
  - MUSCLE SPASMS [None]
  - PAIN [None]
  - SWELLING [None]
